FAERS Safety Report 20077166 (Version 2)
Quarter: 2022Q1

REPORT INFORMATION
  Report Type: Report from Study
  Country: US (occurrence: US)
  Receive Date: 20211116
  Receipt Date: 20220215
  Transmission Date: 20220423
  Serious: No
  Sender: FDA-Public Use
  Company Number: US-TG THERAPEUTICS INC.-TGT002150

PATIENT
  Sex: Male

DRUGS (5)
  1. UMBRALISIB [Suspect]
     Active Substance: UMBRALISIB
     Indication: B-cell lymphoma
     Dosage: 400 MILLIGRAM, QD
     Route: 048
     Dates: start: 20210820, end: 202110
  2. UMBRALISIB [Suspect]
     Active Substance: UMBRALISIB
     Dosage: 800 MILLIGRAM, QD
     Route: 048
     Dates: start: 202109
  3. UMBRALISIB [Suspect]
     Active Substance: UMBRALISIB
     Dosage: 400 MILLIGRAM, QD
     Route: 048
     Dates: start: 202110
  4. UMBRALISIB [Suspect]
     Active Substance: UMBRALISIB
     Dosage: 800 MILLIGRAM, QD
     Route: 048
  5. UMBRALISIB [Suspect]
     Active Substance: UMBRALISIB
     Dosage: 200 MILLIGRAM, QD
     Route: 048

REACTIONS (14)
  - Vision blurred [Unknown]
  - Laboratory test abnormal [Unknown]
  - Urine output decreased [Unknown]
  - Renal pain [Unknown]
  - Ear congestion [Unknown]
  - Oedema genital [Unknown]
  - Generalised oedema [Unknown]
  - Abdominal pain [Unknown]
  - Decreased appetite [Unknown]
  - Fatigue [Unknown]
  - Diarrhoea [Unknown]
  - Rash [Unknown]
  - Dyspnoea [Unknown]
  - Nausea [Unknown]
